FAERS Safety Report 5257280-2 (Version None)
Quarter: 2007Q1

REPORT INFORMATION
  Report Type: 
  Country: None (occurrence: None)
  Receive Date: 20070302
  Receipt Date: 20070227
  Transmission Date: 20070707
  Serious: Yes (Hospitalization)
  Sender: FDA-Public Use
  Company Number: 2007SP002056

PATIENT
  Age: 76 Year
  Sex: Male

DRUGS (16)
  1. TEMOZOLOMIDE  (S-P) (TEMOZOLOMIDE) [Suspect]
     Indication: GLIOMA
     Dosage: SEE IMAGE
     Dates: start: 20061206, end: 20061210
  2. TEMOZOLOMIDE  (S-P) (TEMOZOLOMIDE) [Suspect]
     Indication: GLIOMA
     Dosage: SEE IMAGE
     Dates: start: 20070118, end: 20070122
  3. ZOPHREN [Concomitant]
  4. MEDROL [Concomitant]
  5. SOLU-MEDROL [Concomitant]
  6. CIPROFLOXACIN [Concomitant]
  7. FLAGYL [Concomitant]
  8. DIANTALVIC [Concomitant]
  9. NEURONTIN [Concomitant]
  10. DIFFU K [Concomitant]
  11. DIFFU K [Concomitant]
  12. IMOVANE [Concomitant]
  13. MEDROL [Concomitant]
  14. MOVICOL [Concomitant]
  15. NEXIUM [Concomitant]
  16. DAFALGAN [Concomitant]

REACTIONS (14)
  - BACTERIA STOOL IDENTIFIED [None]
  - CARDIAC FLUTTER [None]
  - CONFUSIONAL STATE [None]
  - DEHYDRATION [None]
  - DRY SKIN [None]
  - EPILEPSY [None]
  - FALL [None]
  - GRAND MAL CONVULSION [None]
  - MALAISE [None]
  - MUSCULAR WEAKNESS [None]
  - RENAL IMPAIRMENT [None]
  - STAPHYLOCOCCAL SEPSIS [None]
  - TREMOR [None]
  - URINARY INCONTINENCE [None]
